FAERS Safety Report 9440714 (Version 2)
Quarter: 2013Q3

REPORT INFORMATION
  Report Type: Spontaneous
  Country: US (occurrence: None)
  Receive Date: 20130801
  Receipt Date: 20130828
  Transmission Date: 20140515
  Serious: Yes (Hospitalization, Other)
  Sender: FDA-Public Use
  Company Number: JPI-P-033816

PATIENT
  Age: 33 Year
  Sex: Female

DRUGS (2)
  1. XYREM [Suspect]
     Indication: NARCOLEPSY
     Dosage: 4.5 GM (2.25 GM, 2 IN 1 D), ORAL
     Route: 048
     Dates: start: 20120731
  2. XYREM [Suspect]
     Indication: SOMNOLENCE
     Dosage: 4.5 GM (2.25 GM, 2 IN 1 D), ORAL
     Route: 048
     Dates: start: 20120731

REACTIONS (3)
  - Pulmonary embolism [None]
  - Headache [None]
  - Behcet^s syndrome [None]
